FAERS Safety Report 7845250-7 (Version None)
Quarter: 2011Q4

REPORT INFORMATION
  Report Type: 
  Country: None (occurrence: None)
  Receive Date: 20111025
  Receipt Date: 20111019
  Transmission Date: 20120403
  Serious: Yes (Life-Threatening)
  Sender: FDA-Public Use
  Company Number: IT-BAYER-2011-101389

PATIENT
  Age: 59 Year
  Sex: Female

DRUGS (1)
  1. ASPIRIN [Suspect]
     Indication: ALLERGY TEST
     Dosage: DAILY DOSE 150 MG
     Route: 048
     Dates: start: 20111017, end: 20111017

REACTIONS (4)
  - BRONCHOSPASM [None]
  - HYPERSENSITIVITY [None]
  - COUGH [None]
  - ANGIOEDEMA [None]
